FAERS Safety Report 9509383 (Version 1)
Quarter: 2013Q3

REPORT INFORMATION
  Report Type: Report from Study
  Country: US (occurrence: US)
  Receive Date: 20130909
  Receipt Date: 20130909
  Transmission Date: 20140515
  Serious: Yes (Other)
  Sender: FDA-Public Use
  Company Number: US-CELGENEUS-163-22393-13090427

PATIENT
  Sex: Female

DRUGS (2)
  1. ISTODAX [Suspect]
     Indication: MYCOSIS FUNGOIDES
     Dosage: 4 MILLIGRAM/SQ. METER
     Route: 065
     Dates: start: 20130612
  2. ISTODAX [Suspect]
     Dosage: 4 MILLIGRAM/SQ. METER
     Route: 065
     Dates: start: 2013

REACTIONS (3)
  - Bone marrow failure [Unknown]
  - White blood cell count decreased [Unknown]
  - Platelet count decreased [Unknown]
